FAERS Safety Report 7969058-7 (Version None)
Quarter: 2011Q4

REPORT INFORMATION
  Report Type: 
  Country: None (occurrence: None)
  Receive Date: 20111208
  Receipt Date: 20111128
  Transmission Date: 20120403
  Serious: Yes (Death)
  Sender: FDA-Public Use
  Company Number: TCI2011A04784

PATIENT
  Age: 49 Year
  Sex: Female

DRUGS (5)
  1. ALDACTONE [Concomitant]
  2. FUROSEMIDE [Concomitant]
  3. LANSOPRAZOLE [Suspect]
     Indication: GASTROOESOPHAGEAL REFLUX DISEASE
     Dosage: 15 MG (15 MG, 1 IN 1 D) PER ORAL
     Route: 048
     Dates: end: 20101212
  4. SEROQUEL [Concomitant]
  5. PHENYTOIN [Concomitant]

REACTIONS (4)
  - RESPIRATORY FAILURE [None]
  - RESPIRATORY DEPRESSION [None]
  - ERYTHEMA [None]
  - RASH [None]
